FAERS Safety Report 6900243-9 (Version None)
Quarter: 2010Q3

REPORT INFORMATION
  Report Type: 
  Country: None (occurrence: None)
  Receive Date: 20100803
  Receipt Date: 20100726
  Transmission Date: 20110219
  Serious: Yes (Death)
  Sender: FDA-Public Use
  Company Number: FR-ROCHE-717721

PATIENT
  Age: 83 Year
  Sex: Male

DRUGS (1)
  1. XELODA [Suspect]
     Dosage: FOR 14 DAYS
     Route: 065

REACTIONS (4)
  - DIHYDROPYRIMIDINE DEHYDROGENASE DEFICIENCY [None]
  - LEUKOPENIA [None]
  - MUCOSAL INFLAMMATION [None]
  - SKIN TOXICITY [None]
